FAERS Safety Report 20837394 (Version 4)
Quarter: 2023Q2

REPORT INFORMATION
  Report Type: Other
  Country: IN (occurrence: None)
  Receive Date: 20220517
  Receipt Date: 20230630
  Transmission Date: 20230721
  Serious: Yes (Other)
  Sender: FDA-Public Use
  Company Number: IN-ROCHE-3093753

PATIENT
  Age: 60 Year
  Sex: Female

DRUGS (1)
  1. TECENTRIQ [Suspect]
     Active Substance: ATEZOLIZUMAB
     Indication: Lung adenocarcinoma
     Route: 042
     Dates: start: 20211026

REACTIONS (6)
  - Diarrhoea [Unknown]
  - Stomatitis [Unknown]
  - Asthenia [Unknown]
  - Iron deficiency [Unknown]
  - Off label use [Unknown]
  - Viral infection [Unknown]
